FAERS Safety Report 4728977-5 (Version None)
Quarter: 2005Q3

REPORT INFORMATION
  Report Type: 
  Country: None (occurrence: None)
  Receive Date: 20050729
  Receipt Date: 20041207
  Transmission Date: 20060218
  Serious: No
  Sender: FDA-Public Use
  Company Number: US-GLAXOSMITHKLINE-A0536592A

PATIENT
  Age: 70 Year
  Sex: Female
  Weight: 81.5 kg

DRUGS (2)
  1. IMITREX [Suspect]
     Indication: MIGRAINE
     Dosage: 25MG VARIABLE DOSE
     Route: 048
     Dates: start: 20040101, end: 20041201
  2. IMITREX [Concomitant]

REACTIONS (6)
  - DIZZINESS [None]
  - IMPAIRED WORK ABILITY [None]
  - NAUSEA [None]
  - PHARMACEUTICAL PRODUCT COMPLAINT [None]
  - STOMACH DISCOMFORT [None]
  - VOMITING [None]
